FAERS Safety Report 8579849-X (Version None)
Quarter: 2012Q3

REPORT INFORMATION
  Report Type: 
  Country: None (occurrence: None)
  Receive Date: 20120808
  Receipt Date: 20120308
  Transmission Date: 20120928
  Serious: Yes (Other)
  Sender: FDA-Public Use
  Company Number: SI-GLAXOSMITHKLINE-B0787526A

PATIENT
  Sex: Male

DRUGS (4)
  1. TEGRETOL [Concomitant]
     Indication: PRODUCT USED FOR UNKNOWN INDICATION
     Dosage: 600MG PER DAY
     Route: 065
  2. DEPAKENE [Concomitant]
     Indication: PRODUCT USED FOR UNKNOWN INDICATION
     Dosage: 1000MG PER DAY
     Route: 065
  3. LYRICA [Concomitant]
     Indication: PRODUCT USED FOR UNKNOWN INDICATION
     Dosage: 150MG PER DAY
     Route: 065
  4. POTIGA [Suspect]
     Indication: PARTIAL SEIZURES
     Dosage: 200MG THREE TIMES PER DAY
     Route: 065
     Dates: start: 20120202

REACTIONS (4)
  - GAIT DISTURBANCE [None]
  - DYSARTHRIA [None]
  - DYSPHEMIA [None]
  - CONVULSION [None]
